FAERS Safety Report 8570796 (Version 2)
Quarter: 2013Q1

REPORT INFORMATION
  Report Type: Report from Study
  Country: PR (occurrence: PR)
  Receive Date: 20120521
  Receipt Date: 20130301
  Transmission Date: 20140127
  Serious: No
  Sender: FDA-Public Use
  Company Number: PR-MYLANLABS-2012S1009699

PATIENT
  Sex: Female

DRUGS (1)
  1. AMNESTEEM CAPSULES [Suspect]

REACTIONS (1)
  - Pregnancy test false positive [Not Recovered/Not Resolved]
